FAERS Safety Report 5953069-7 (Version None)
Quarter: 2008Q4

REPORT INFORMATION
  Report Type: 
  Country: None (occurrence: None)
  Receive Date: 20081114
  Receipt Date: 20071025
  Transmission Date: 20090506
  Serious: No
  Sender: FDA-Public Use
  Company Number: US-BRISTOL-MYERS SQUIBB COMPANY-13956115

PATIENT
  Age: 63 Year
  Sex: Male
  Weight: 121 kg

DRUGS (11)
  1. GLUCOPHAGE XR [Suspect]
     Indication: DIABETES MELLITUS
     Dosage: 500MG 1 TAB ONCE DAILY WHICH WAS INCREASED TO 4 TAB DAILY.
     Route: 048
  2. ALLOPURINOL [Concomitant]
  3. ACCUPRIL [Concomitant]
  4. TOPROL-XL [Concomitant]
  5. NORVASC [Concomitant]
  6. LIPITOR [Concomitant]
  7. ZETIA [Concomitant]
  8. ASPIRIN [Concomitant]
  9. FISH OIL [Concomitant]
  10. GLUCOSAMINE [Concomitant]
  11. CHONDROITIN [Concomitant]

REACTIONS (1)
  - DRUG INEFFECTIVE [None]
